FAERS Safety Report 15903492 (Version 1)
Quarter: 2019Q1

REPORT INFORMATION
  Report Type: Spontaneous
  Country: US (occurrence: US)
  Receive Date: 20190203
  Receipt Date: 20190203
  Transmission Date: 20190417
  Serious: No
  Sender: FDA-Public Use
  Company Number: US-TEVA-2019-US-996019

PATIENT
  Age: 32 Year
  Sex: Female

DRUGS (3)
  1. ACTAVIS CLONAZEPAM [Suspect]
     Active Substance: CLONAZEPAM
     Indication: PAIN
     Route: 065
  2. ACTAVIS CLONAZEPAM [Suspect]
     Active Substance: CLONAZEPAM
     Indication: INSOMNIA
  3. ACTAVIS CLONAZEPAM [Suspect]
     Active Substance: CLONAZEPAM
     Indication: FATIGUE

REACTIONS (3)
  - Poor quality sleep [Unknown]
  - Pain [Unknown]
  - Product substitution issue [Unknown]
